FAERS Safety Report 6229317-5 (Version None)
Quarter: 2009Q2

REPORT INFORMATION
  Report Type: 
  Country: None (occurrence: None)
  Receive Date: 20090615
  Receipt Date: 20090608
  Transmission Date: 20091009
  Serious: Yes (Life-Threatening, Hospitalization)
  Sender: FDA-Public Use
  Company Number: FR-AVENTIS-200912116FR

PATIENT
  Age: 50 Year
  Sex: Male

DRUGS (4)
  1. CLAFORAN [Suspect]
     Indication: MENINGOENCEPHALITIS BACTERIAL
     Route: 042
     Dates: start: 20090107, end: 20090118
  2. VANCOMYCINE [Suspect]
     Indication: MENINGOENCEPHALITIS BACTERIAL
     Route: 042
     Dates: start: 20090107, end: 20090118
  3. ZYVOXID [Suspect]
     Indication: MENINGOENCEPHALITIS BACTERIAL
     Route: 042
     Dates: start: 20090118, end: 20090126
  4. CIPROFLOXACIN HCL [Suspect]
     Indication: MENINGOENCEPHALITIS BACTERIAL
     Route: 042
     Dates: start: 20090118, end: 20090126

REACTIONS (1)
  - MYCOTIC ANEURYSM [None]
